FAERS Safety Report 25054402 (Version 1)
Quarter: 2025Q1

REPORT INFORMATION
  Report Type: Report from Study
  Country: US (occurrence: US)
  Receive Date: 20250307
  Receipt Date: 20250307
  Transmission Date: 20250409
  Serious: Yes (Hospitalization)
  Sender: ABBVIE
  Company Number: US-ABBVIE-6158314

PATIENT
  Sex: Female

DRUGS (1)
  1. SKYRIZI [Suspect]
     Active Substance: RISANKIZUMAB-RZAA
     Indication: Psoriasis
     Route: 058
     Dates: start: 20241008

REACTIONS (2)
  - Sternal fracture [Recovering/Resolving]
  - Road traffic accident [Recovering/Resolving]
